FAERS Safety Report 18199705 (Version 1)
Quarter: 2020Q3

REPORT INFORMATION
  Report Type: Spontaneous
  Country: DE (occurrence: DE)
  Receive Date: 20200826
  Receipt Date: 20200826
  Transmission Date: 20201103
  Serious: Yes (Life-Threatening, Hospitalization, Other)
  Sender: FDA-Public Use
  Company Number: DE-SHIRE-DE202026483

PATIENT

DRUGS (2)
  1. INTUNIV [Suspect]
     Active Substance: GUANFACINE HYDROCHLORIDE
     Indication: ATTENTION DEFICIT HYPERACTIVITY DISORDER
     Dosage: DAILY DOSE: 3 MG MILLGRAM(S) EVERY DAYS
     Route: 048
  2. MEDIKINET [Concomitant]
     Active Substance: METHYLPHENIDATE
     Indication: ATTENTION DEFICIT HYPERACTIVITY DISORDER
     Dosage: DAILY DOSE: 20 MG MILLGRAM(S) EVERY DAYS
     Route: 048

REACTIONS (6)
  - Seizure [Recovering/Resolving]
  - Headache [Recovering/Resolving]
  - Deprescribing error [Recovering/Resolving]
  - Vomiting [Recovering/Resolving]
  - Posterior reversible encephalopathy syndrome [Recovering/Resolving]
  - Withdrawal hypertension [Recovering/Resolving]

NARRATIVE: CASE EVENT DATE: 20200705
